FAERS Safety Report 25121408 (Version 1)
Quarter: 2025Q1

REPORT INFORMATION
  Report Type: Spontaneous
  Country: US (occurrence: US)
  Receive Date: 20250326
  Receipt Date: 20250326
  Transmission Date: 20250409
  Serious: Yes (Hospitalization)
  Sender: MERCK SHARP & DOHME LLC
  Company Number: US-009507513-2268257

PATIENT
  Sex: Female

DRUGS (7)
  1. SOTATERCEPT [Suspect]
     Active Substance: SOTATERCEPT
     Dosage: EVERY 3 WEEKS
     Route: 058
  2. SOTATERCEPT [Suspect]
     Active Substance: SOTATERCEPT
  3. SOTATERCEPT [Suspect]
     Active Substance: SOTATERCEPT
  4. SOTATERCEPT [Suspect]
     Active Substance: SOTATERCEPT
  5. SILDENAFIL CITRATE [Concomitant]
     Active Substance: SILDENAFIL CITRATE
  6. AMBRISENTAN [Concomitant]
     Active Substance: AMBRISENTAN
  7. Tyvaso Dpi Maint Kit Pwd [Concomitant]

REACTIONS (1)
  - Heart and lung transplant [Unknown]
